FAERS Safety Report 4332442-7 (Version None)
Quarter: 2004Q2

REPORT INFORMATION
  Report Type: 
  Country: None (occurrence: None)
  Receive Date: 20040401
  Receipt Date: 20040316
  Transmission Date: 20050107
  Serious: Yes (Hospitalization)
  Sender: FDA-Public Use
  Company Number: 7686

PATIENT
  Age: 46 Year
  Sex: Male

DRUGS (3)
  1. METHOTREXATE [Suspect]
     Indication: RHEUMATOID ARTHRITIS
     Dosage: 10 MG WEEKLY
     Route: 030
  2. ETANERCEPT [Suspect]
     Indication: RHEUMATOID ARTHRITIS
     Dosage: 25 MG BID
     Route: 058
     Dates: start: 20030915, end: 20031118
  3. CELECOXIB [Suspect]
     Indication: RHEUMATOID ARTHRITIS
     Dosage: 200 MG
     Route: 048
     Dates: end: 20031119

REACTIONS (4)
  - ANTINUCLEAR ANTIBODY POSITIVE [None]
  - ARTERIAL THROMBOSIS LIMB [None]
  - FIBRINOLYSIS [None]
  - PERIPHERAL REVASCULARISATION [None]
